FAERS Safety Report 12639102 (Version 1)
Quarter: 2016Q3

REPORT INFORMATION
  Report Type: Report from Study
  Country: US (occurrence: US)
  Receive Date: 20160809
  Receipt Date: 20160809
  Transmission Date: 20161109
  Serious: Yes (Hospitalization)
  Sender: FDA-Public Use
  Company Number: US-ROCHE-772042

PATIENT
  Age: 69 Year
  Sex: Female
  Weight: 79.9 kg

DRUGS (6)
  1. VISMODEGIB [Suspect]
     Active Substance: VISMODEGIB
     Dosage: COURSE 3
     Route: 048
  2. VISMODEGIB [Suspect]
     Active Substance: VISMODEGIB
     Dosage: COURSE 4
     Route: 048
     Dates: start: 20100517, end: 20100602
  3. CISPLATIN. [Suspect]
     Active Substance: CISPLATIN
     Indication: SMALL CELL LUNG CANCER EXTENSIVE STAGE
     Dosage: 75 MG/M2 IV OVER 1-2 HOURS ON DAY 1, TREATMENT REPEATS EVERY 21 DAYS FOR 4 COURSES
     Route: 042
     Dates: start: 20100301, end: 20100602
  4. VISMODEGIB [Suspect]
     Active Substance: VISMODEGIB
     Indication: SMALL CELL LUNG CANCER EXTENSIVE STAGE
     Dosage: VISMODEGIB (GDC-0449; 150 MG TABLET) ORALLY (PO) ONCE DAILY (QD) ON DAYS 1-21. TREATMENT REPEATS EVE
     Route: 048
  5. ETOPOSIDE. [Suspect]
     Active Substance: ETOPOSIDE
     Indication: SMALL CELL LUNG CANCER EXTENSIVE STAGE
     Dosage: 100 MG/M2 IV OVER 1-2 HOURS ON DAYS 1-3, TREATMENT REPEATS EVERY 21 DAYS FOR 4 COURSES
     Route: 042
     Dates: start: 20100301, end: 20100602
  6. VISMODEGIB [Suspect]
     Active Substance: VISMODEGIB
     Dosage: COURSE 2
     Route: 048

REACTIONS (4)
  - Nausea [Recovered/Resolved]
  - Headache [Recovered/Resolved]
  - Dehydration [Recovered/Resolved]
  - Hyponatraemia [Unknown]

NARRATIVE: CASE EVENT DATE: 20100405
